FAERS Safety Report 6049168-4 (Version None)
Quarter: 2009Q1

REPORT INFORMATION
  Report Type: 
  Country: None (occurrence: None)
  Receive Date: 20090123
  Receipt Date: 20090113
  Transmission Date: 20090719
  Serious: Yes (Hospitalization, Other)
  Sender: FDA-Public Use
  Company Number: AR-PFIZER INC-2008045136

PATIENT

DRUGS (1)
  1. CHAMPIX [Suspect]
     Dosage: 1 MG, 2X/DAY
     Route: 048
     Dates: start: 20080501, end: 20080701

REACTIONS (8)
  - ABDOMINAL ADHESIONS [None]
  - ABDOMINAL DISTENSION [None]
  - ABDOMINAL NEOPLASM [None]
  - ABDOMINAL PAIN [None]
  - COLON CANCER [None]
  - CONSTIPATION [None]
  - INFECTION [None]
  - PAPILLOMA [None]
